FAERS Safety Report 21136517 (Version 1)
Quarter: 2022Q3

REPORT INFORMATION
  Report Type: Spontaneous
  Country: US (occurrence: None)
  Receive Date: 20220726
  Receipt Date: 20220726
  Transmission Date: 20221027
  Serious: No
  Sender: FDA-Public Use
  Company Number: None

PATIENT
  Sex: Female

DRUGS (1)
  1. IBRANCE [Suspect]
     Active Substance: PALBOCICLIB
     Indication: Breast cancer
     Dosage: FR125MG ONCE DAILY BY MOUTH
     Route: 048
     Dates: start: 20200909

REACTIONS (2)
  - Impaired healing [None]
  - Skin burning sensation [None]
